FAERS Safety Report 10552080 (Version 1)
Quarter: 2014Q4

REPORT INFORMATION
  Report Type: Spontaneous
  Country: US (occurrence: None)
  Receive Date: 20141027
  Receipt Date: 20141027
  Transmission Date: 20150529
  Serious: Yes (Hospitalization)
  Sender: FDA-Public Use
  Company Number: US-ZYDUS-005296

PATIENT
  Age: 11 Year
  Sex: Male

DRUGS (2)
  1. RISPERIDONE. [Suspect]
     Active Substance: RISPERIDONE
     Indication: CONDUCT DISORDER
  2. OXCARBAZEPINE. [Suspect]
     Active Substance: OXCARBAZEPINE
     Indication: CONDUCT DISORDER

REACTIONS (6)
  - Drug interaction [None]
  - Dysarthria [None]
  - Oromandibular dystonia [None]
  - Therapy cessation [None]
  - Extrapyramidal disorder [None]
  - Drug withdrawal syndrome [None]
